FAERS Safety Report 7410430-1 (Version None)
Quarter: 2011Q2

REPORT INFORMATION
  Report Type: 
  Country: None (occurrence: None)
  Receive Date: 20110412
  Receipt Date: 20090102
  Transmission Date: 20111010
  Serious: Yes (Death, Disabling)
  Sender: FDA-Public Use
  Company Number: US-BAYER-200835136NA

PATIENT
  Sex: Male
  Weight: 86 kg

DRUGS (10)
  1. PROHANCE [Suspect]
     Indication: DIAGNOSTIC PROCEDURE
  2. OMNISCAN [Suspect]
     Indication: DIAGNOSTIC PROCEDURE
  3. GADOLINIUM IN UNSPECIFIED DRUG [Suspect]
     Indication: NUCLEAR MAGNETIC RESONANCE IMAGING
     Dosage: UNK
     Dates: start: 20040615, end: 20040615
  4. GADOLINIUM IN UNSPECIFIED DRUG [Suspect]
     Indication: PAIN IN EXTREMITY
  5. GADOLINIUM IN UNSPECIFIED DRUG [Suspect]
     Indication: MUSCULAR WEAKNESS
  6. MULTIHANCE [Suspect]
     Indication: DIAGNOSTIC PROCEDURE
  7. GADOLINIUM IN UNSPECIFIED DRUG [Suspect]
     Indication: NUCLEAR MAGNETIC RESONANCE IMAGING BRAIN
  8. MAGNEVIST [Suspect]
     Indication: DIAGNOSTIC PROCEDURE
     Dosage: UNK
     Route: 042
  9. OPTIMARK [Suspect]
     Indication: DIAGNOSTIC PROCEDURE
  10. SEVERAL MEDICATIONS [Concomitant]
     Indication: PAIN

REACTIONS (23)
  - PAIN [None]
  - GAIT DISTURBANCE [None]
  - SKIN DISCOLOURATION [None]
  - MUSCULOSKELETAL STIFFNESS [None]
  - MUSCLE TIGHTNESS [None]
  - SKIN INDURATION [None]
  - HYPOAESTHESIA [None]
  - ASTHENIA [None]
  - RASH MACULAR [None]
  - SCAR [None]
  - SKIN HYPERTROPHY [None]
  - CARDIO-RESPIRATORY ARREST [None]
  - NEPHROGENIC SYSTEMIC FIBROSIS [None]
  - JOINT RANGE OF MOTION DECREASED [None]
  - SKIN TIGHTNESS [None]
  - ABASIA [None]
  - CARDIAC FAILURE CONGESTIVE [None]
  - PRURITUS GENERALISED [None]
  - BONE PAIN [None]
  - SWELLING [None]
  - MOBILITY DECREASED [None]
  - SKIN ULCER [None]
  - BURNING SENSATION [None]
